FAERS Safety Report 12395578 (Version 1)
Quarter: 2016Q2

REPORT INFORMATION
  Report Type: Spontaneous
  Country: FR (occurrence: FR)
  Receive Date: 20160523
  Receipt Date: 20160523
  Transmission Date: 20160815
  Serious: Yes (Hospitalization, Other)
  Sender: FDA-Public Use
  Company Number: FR-ELI_LILLY_AND_COMPANY-FR201605004707

PATIENT
  Age: 74 Year
  Sex: Male

DRUGS (4)
  1. PROZAC [Suspect]
     Active Substance: FLUOXETINE HYDROCHLORIDE
     Indication: DEPRESSION
     Dosage: 20 MG, QD
     Route: 048
     Dates: start: 2015
  2. NEBILOX [Concomitant]
     Active Substance: NEBIVOLOL HYDROCHLORIDE
     Indication: PRODUCT USED FOR UNKNOWN INDICATION
     Dosage: 5 MG, UNKNOWN
     Route: 065
  3. TAHOR [Concomitant]
     Active Substance: ATORVASTATIN CALCIUM
     Indication: PRODUCT USED FOR UNKNOWN INDICATION
     Dosage: 20 MG, UNKNOWN
     Route: 065
  4. LAROXYL [Suspect]
     Active Substance: AMITRIPTYLINE
     Indication: DEPRESSION
     Dosage: 35 GTT, UNKNOWN
     Route: 048
     Dates: start: 2015, end: 20160304

REACTIONS (8)
  - Urinary retention [Recovered/Resolved]
  - Pyramidal tract syndrome [Unknown]
  - Fall [Unknown]
  - Dysphonia [Unknown]
  - Faecaloma [Recovered/Resolved]
  - Rhabdomyolysis [Unknown]
  - General physical health deterioration [Unknown]
  - Agitation [Unknown]

NARRATIVE: CASE EVENT DATE: 201602
